FAERS Safety Report 4903732-1 (Version None)
Quarter: 2006Q1

REPORT INFORMATION
  Report Type: 
  Country: None (occurrence: None)
  Receive Date: 20060113
  Receipt Date: 20051128
  Transmission Date: 20060701
  Serious: No
  Sender: FDA-Public Use
  Company Number: 2005SP004158

PATIENT
  Age: 78 Year
  Sex: Male
  Weight: 90.7194 kg

DRUGS (9)
  1. LUNESTA [Suspect]
     Indication: INITIAL INSOMNIA
     Dosage: 2 MG;PRN;ORAL
     Route: 048
     Dates: start: 20051109, end: 20051101
  2. LUNESTA [Suspect]
     Dosage: 4 MG;HS;ORAL
     Route: 048
     Dates: start: 20051127, end: 20051128
  3. AMBIEN [Concomitant]
  4. ARICEPT [Concomitant]
  5. FLOMAX [Concomitant]
  6. SYNTHROID [Concomitant]
  7. DEPAKOTE [Concomitant]
  8. PACERONE [Concomitant]
  9. METOPROLOL [Concomitant]

REACTIONS (2)
  - DRUG INEFFECTIVE [None]
  - INITIAL INSOMNIA [None]
